FAERS Safety Report 25665112 (Version 1)
Quarter: 2025Q3

REPORT INFORMATION
  Report Type: Spontaneous
  Country: US (occurrence: None)
  Receive Date: 20250809
  Receipt Date: 20250809
  Transmission Date: 20251020
  Serious: Yes (Hospitalization)
  Sender: FDA-CTU
  Company Number: None

PATIENT
  Age: 80 Year
  Sex: Female
  Weight: 81.4 kg

DRUGS (2)
  1. EVEROLIMUS [Suspect]
     Active Substance: EVEROLIMUS
  2. SORAFENIB [Suspect]
     Active Substance: SORAFENIB

REACTIONS (3)
  - Pleural effusion [None]
  - Dyspnoea exertional [None]
  - Tachypnoea [None]

NARRATIVE: CASE EVENT DATE: 20180505
